FAERS Safety Report 8821750 (Version 2)
Quarter: 2012Q4

REPORT INFORMATION
  Report Type: 
  Country: DE (occurrence: DE)
  Receive Date: 20121002
  Receipt Date: 20121022
  Transmission Date: 20130627
  Serious: Yes (Hospitalization)
  Sender: FDA-Public Use
  Company Number: DE-B.I. PHARMACEUTICALS,INC./RIDGEFIELD-2012-DE-02280DE

PATIENT
  Sex: Male
  Weight: 92 kg

DRUGS (3)
  1. PRADAXA [Suspect]
     Indication: ATRIAL FIBRILLATION
     Dosage: 300 mg
     Dates: start: 20120831, end: 20120907
  2. PRADAXA [Suspect]
     Dosage: 300 mg
     Dates: start: 20120916
  3. BISOPROLOL [Concomitant]
     Indication: CARDIAC DISORDER
     Dosage: 2.5 mg
     Route: 048
     Dates: start: 201206

REACTIONS (3)
  - Epilepsy [Unknown]
  - Partial seizures [Unknown]
  - Disorientation [Unknown]
